FAERS Safety Report 7941035-1 (Version None)
Quarter: 2011Q4

REPORT INFORMATION
  Report Type: 
  Country: None (occurrence: None)
  Receive Date: 20111128
  Receipt Date: 20111123
  Transmission Date: 20120403
  Serious: Yes (Hospitalization, Other)
  Sender: FDA-Public Use
  Company Number: DE-BRISTOL-MYERS SQUIBB COMPANY-15614175

PATIENT
  Age: 69 Year
  Sex: Male
  Weight: 60 kg

DRUGS (13)
  1. PANTOPRAZOLE SODIUM [Concomitant]
     Dates: start: 20110208
  2. SPIRIVA [Concomitant]
     Dates: start: 19900101
  3. LYRICA [Concomitant]
     Dates: start: 20110208
  4. NOVALGIN [Concomitant]
     Dates: start: 20110208
  5. AMITRIPTYLINE HCL [Concomitant]
     Dates: start: 20110222
  6. GEMZAR [Suspect]
     Indication: NON-SMALL CELL LUNG CANCER
     Dosage: LAST RECEIVED 04MAR2011,PATIENT WITHDREW FROM STUDY ON 18MAR11
     Route: 065
     Dates: start: 20110225, end: 20110304
  7. TARGIN [Concomitant]
     Dates: start: 20110208
  8. FOLSAN [Concomitant]
     Dates: start: 20110208
  9. PREDNISOLONE [Concomitant]
     Dates: start: 20110208
  10. OXYCODONE HYDROCHLORIDE [Concomitant]
     Dates: start: 20110208
  11. MOVIPREP [Concomitant]
     Dates: start: 20110218
  12. CISPLATIN [Suspect]
     Indication: NON-SMALL CELL LUNG CANCER
     Dosage: PATIENT WITHDREW FROM STUDY ON 18MAR11
     Route: 065
     Dates: start: 20110225, end: 20110225
  13. BERODUAL [Concomitant]
     Dates: start: 19900101

REACTIONS (4)
  - DEHYDRATION [None]
  - THROMBOCYTOPENIA [None]
  - STOMATITIS [None]
  - NEUTROPENIA [None]
